FAERS Safety Report 22113574 (Version 2)
Quarter: 2023Q1

REPORT INFORMATION
  Report Type: Other
  Country: PK (occurrence: None)
  Receive Date: 20230320
  Receipt Date: 20230321
  Transmission Date: 20230417
  Serious: Yes (Death)
  Sender: FDA-Public Use
  Company Number: PK-ROCHE-3310558

PATIENT
  Age: 78 Year
  Sex: Female

DRUGS (1)
  1. HERCEPTIN [Suspect]
     Active Substance: TRASTUZUMAB
     Indication: Breast cancer
     Dosage: 600MG/5 ML VIAL, TOTAL NUMBER OF CYCLES ADMINISTERED = 01
     Route: 058
     Dates: start: 20230222, end: 20230222

REACTIONS (1)
  - Condition aggravated [Fatal]

NARRATIVE: CASE EVENT DATE: 20230303
